FAERS Safety Report 20623422 (Version 1)
Quarter: 2022Q1

REPORT INFORMATION
  Report Type: Spontaneous
  Country: ES (occurrence: ES)
  Receive Date: 20220322
  Receipt Date: 20220322
  Transmission Date: 20220423
  Serious: Yes (Other)
  Sender: FDA-Public Use
  Company Number: ES-VIIV HEALTHCARE LIMITED-ES2021EME009041

PATIENT
  Age: 57 Year
  Sex: Male

DRUGS (2)
  1. DOVATO [Interacting]
     Active Substance: DOLUTEGRAVIR SODIUM\LAMIVUDINE
     Indication: HIV infection
     Dosage: UNK
     Dates: start: 201902
  2. CLOBAZAM [Interacting]
     Active Substance: CLOBAZAM
     Indication: Epilepsy
     Dosage: UNK
     Dates: start: 201902

REACTIONS (5)
  - Viral mutation identified [Unknown]
  - Pathogen resistance [Unknown]
  - Virologic failure [Unknown]
  - Drug interaction [Unknown]
  - Treatment failure [Unknown]
